FAERS Safety Report 8295278-0 (Version None)
Quarter: 2012Q2

REPORT INFORMATION
  Report Type: 
  Country: None (occurrence: None)
  Receive Date: 20120418
  Receipt Date: 20120402
  Transmission Date: 20120825
  Serious: Yes (Hospitalization)
  Sender: FDA-Public Use
  Company Number: FR-BAXTER-2012BH006797

PATIENT
  Sex: Female

DRUGS (13)
  1. LEVOTHYROXINE SODIUM [Concomitant]
     Route: 065
  2. ONDANSETRON [Concomitant]
     Route: 042
     Dates: start: 20120201, end: 20120201
  3. ACETYLSALICYLIC ACID SRT [Concomitant]
     Route: 065
  4. ACETAMINOPHEN [Concomitant]
     Route: 065
  5. PRIMPERAN TAB [Concomitant]
     Route: 042
     Dates: start: 20120201, end: 20120201
  6. EMEND [Suspect]
     Dosage: DAILY DAY1-DAY3
     Route: 048
     Dates: start: 20120209, end: 20120211
  7. TENORMIN [Concomitant]
     Route: 065
  8. MESNA [Concomitant]
     Dates: start: 20120209, end: 20120209
  9. PAROXETINE HYDROCHLORIDE [Concomitant]
     Route: 065
  10. INSULINE                           /01223401/ [Concomitant]
     Route: 065
  11. IFOSFAMIDE [Suspect]
     Indication: ANGIOSARCOMA
     Dosage: DAILY DAY1-DAY3
     Route: 042
     Dates: start: 20120209, end: 20120211
  12. NITRODERM [Concomitant]
     Route: 065
  13. OXYCODONE HCL [Concomitant]
     Route: 065

REACTIONS (2)
  - ENCEPHALOPATHY [None]
  - PYREXIA [None]
